FAERS Safety Report 16065882 (Version 1)
Quarter: 2019Q2

REPORT INFORMATION
  Report Type: Spontaneous
  Country: US (occurrence: US)
  Receive Date: 20190312
  Receipt Date: 20190312
  Transmission Date: 20190711
  Serious: Yes (Hospitalization)
  Sender: FDA-Public Use
  Company Number: None

PATIENT
  Age: 88 Year
  Sex: Female
  Weight: 55.2 kg

DRUGS (2)
  1. LAMOTRIGINE. [Suspect]
     Active Substance: LAMOTRIGINE
     Route: 048
     Dates: start: 20190225, end: 20190309
  2. PAXIL [Concomitant]
     Active Substance: PAROXETINE HYDROCHLORIDE
     Dates: start: 20190225, end: 20190309

REACTIONS (10)
  - Dizziness [None]
  - Decreased appetite [None]
  - Confusional state [None]
  - Headache [None]
  - Pain [None]
  - Hallucination [None]
  - Product prescribing error [None]
  - Wrong product administered [None]
  - Nausea [None]
  - Fall [None]

NARRATIVE: CASE EVENT DATE: 20190309
